FAERS Safety Report 25838584 (Version 1)
Quarter: 2025Q3

REPORT INFORMATION
  Report Type: Spontaneous
  Country: US (occurrence: US)
  Receive Date: 20250923
  Receipt Date: 20250923
  Transmission Date: 20251021
  Serious: No
  Sender: ABBVIE
  Company Number: US-ABBVIE-6470357

PATIENT
  Sex: Female

DRUGS (1)
  1. ACUVAIL [Suspect]
     Active Substance: KETOROLAC TROMETHAMINE
     Indication: Eye pain
     Route: 047

REACTIONS (1)
  - Drug hypersensitivity [Unknown]
